FAERS Safety Report 5963463-6 (Version None)
Quarter: 2008Q4

REPORT INFORMATION
  Report Type: 
  Country: None (occurrence: None)
  Receive Date: 20081124
  Receipt Date: 20081119
  Transmission Date: 20090506
  Serious: Yes (Other)
  Sender: FDA-Public Use
  Company Number: US-ASTRAZENECA-2008UW25942

PATIENT
  Age: 61 Year
  Sex: Female

DRUGS (5)
  1. CRESTOR [Suspect]
     Route: 048
  2. SYNTHROID [Concomitant]
  3. LOTENSIN [Concomitant]
  4. ZOVIRAX [Concomitant]
  5. TRIEMTARINE [Concomitant]

REACTIONS (1)
  - TYPE 2 DIABETES MELLITUS [None]
